FAERS Safety Report 24022970 (Version 3)
Quarter: 2024Q3

REPORT INFORMATION
  Report Type: Report from Study
  Country: US (occurrence: US)
  Receive Date: 20240627
  Receipt Date: 20240710
  Transmission Date: 20241017
  Serious: No
  Sender: ROCHE
  Company Number: US-ROCHE-3546655

PATIENT
  Age: 47 Year
  Sex: Female
  Weight: 86.64 kg

DRUGS (7)
  1. VABYSMO [Suspect]
     Active Substance: FARICIMAB\FARICIMAB-SVOA
     Indication: Diabetic retinopathy
     Dosage: DATE OF TREATMENT: 29/FEB/2024, EVERY 5 WEEKS AND THEN EVERY 6 WEEKS
     Route: 050
  2. VABYSMO [Suspect]
     Active Substance: FARICIMAB\FARICIMAB-SVOA
     Indication: Macular oedema
  3. METFORMIN [Concomitant]
     Active Substance: METFORMIN HYDROCHLORIDE
     Indication: Diabetes mellitus
     Dosage: ORAL TABLET 500 MG ONCE A DAY
  4. JARDIANCE [Concomitant]
     Active Substance: EMPAGLIFLOZIN
     Indication: Diabetes mellitus
     Dosage: ORAL TABLET 25 MG ONCE A DAY
     Dates: start: 202203
  5. LISINOPRIL [Concomitant]
     Active Substance: LISINOPRIL
     Indication: Blood pressure measurement
     Dosage: ORAL TABLET 0.25 MG ONCE A DAY
     Dates: start: 202203
  6. ATORVASTATIN [Concomitant]
     Active Substance: ATORVASTATIN
     Dosage: ORAL TABLET 5 MG ONCE A DAY
     Dates: start: 202203
  7. VICTOZA [Concomitant]
     Active Substance: LIRAGLUTIDE
     Indication: Diabetes mellitus
     Dates: end: 20240403

REACTIONS (4)
  - Discomfort [Unknown]
  - Gastroenteritis viral [Recovering/Resolving]
  - Glycosylated haemoglobin decreased [Not Recovered/Not Resolved]
  - Off label use [Unknown]

NARRATIVE: CASE EVENT DATE: 20240322
